FAERS Safety Report 14561771 (Version 1)
Quarter: 2018Q1

REPORT INFORMATION
  Report Type: Spontaneous
  Country: JP (occurrence: JP)
  Receive Date: 20180222
  Receipt Date: 20180222
  Transmission Date: 20180509
  Serious: Yes (Life-Threatening, Hospitalization, Other)
  Sender: FDA-Public Use
  Company Number: JP-ALEMBIC PHARMACUETICALS LIMITED-2018SCAL000108

PATIENT

DRUGS (1)
  1. LITHIUM CARBONATE. [Suspect]
     Active Substance: LITHIUM CARBONATE
     Indication: BIPOLAR DISORDER
     Dosage: 200 MG (200 TABLETS)

REACTIONS (17)
  - Hypotension [Recovered/Resolved]
  - Hyponatraemia [Recovered/Resolved]
  - Nausea [Recovered/Resolved]
  - Gastrointestinal sounds abnormal [Recovered/Resolved]
  - Diarrhoea [Recovered/Resolved]
  - Tongue dry [Recovered/Resolved]
  - Mental status changes [Recovered/Resolved]
  - Vomiting [Recovered/Resolved]
  - Anion gap decreased [Recovered/Resolved]
  - Delirium [Recovered/Resolved]
  - White blood cell count increased [Recovered/Resolved]
  - Dry skin [Recovered/Resolved]
  - Intentional overdose [Recovered/Resolved]
  - Agitation [Recovered/Resolved]
  - Toxicity to various agents [Recovered/Resolved]
  - Blood pressure fluctuation [Recovered/Resolved]
  - Electrocardiogram QT prolonged [Recovered/Resolved]
